FAERS Safety Report 4368569-3 (Version None)
Quarter: 2004Q2

REPORT INFORMATION
  Report Type: 
  Country: None (occurrence: None)
  Receive Date: 20040528
  Receipt Date: 20040514
  Transmission Date: 20050107
  Serious: Yes (Disabling)
  Sender: FDA-Public Use
  Company Number: 2004AP02759

PATIENT
  Age: 53 Year
  Sex: Female

DRUGS (17)
  1. IRESSA [Suspect]
     Indication: ADENOCARCINOMA
     Dosage: 250 MG DAILY PO
     Dates: start: 20030620, end: 20030728
  2. IRESSA [Suspect]
     Indication: NON-SMALL CELL LUNG CANCER
     Dosage: 250 MG DAILY PO
     Dates: start: 20030620, end: 20030728
  3. GLYCEOL [Concomitant]
  4. DECADRON [Concomitant]
  5. KADIAN [Concomitant]
  6. NOVAMIN [Concomitant]
  7. MAGNESIUM OXIDE [Concomitant]
  8. MS CONTIN [Concomitant]
  9. ZANTAC [Concomitant]
  10. PREDONINE [Concomitant]
  11. ADALAT [Concomitant]
  12. RADIOTHERAPY [Concomitant]
  13. PACLITAXEL [Concomitant]
  14. CARBOPLATIN [Concomitant]
  15. VINORELBINE TARTRATE [Concomitant]
  16. GEMCITABINE HYDROCHLORIDE [Concomitant]
  17. DOCETAXEL [Concomitant]

REACTIONS (6)
  - CEREBRAL ARTERY EMBOLISM [None]
  - CEREBRAL INFARCTION [None]
  - DYSPNOEA EXACERBATED [None]
  - LUNG NEOPLASM MALIGNANT [None]
  - MALIGNANT NEOPLASM PROGRESSION [None]
  - STUPOR [None]
